FAERS Safety Report 7249172-4 (Version None)
Quarter: 2011Q1

REPORT INFORMATION
  Report Type: 
  Country: None (occurrence: None)
  Receive Date: 20110128
  Receipt Date: 20101116
  Transmission Date: 20110831
  Serious: Yes (Hospitalization)
  Sender: FDA-Public Use
  Company Number: US-BAYER-201028795NA

PATIENT
  Sex: Female
  Weight: 89.342 kg

DRUGS (8)
  1. MIRENA [Suspect]
     Dosage: UNK
     Dates: start: 20080101
  2. MIRENA [Suspect]
     Dosage: UNK
     Dates: start: 20100101
  3. SERTRALINE HYDROCHLORIDE [Concomitant]
     Indication: DEPRESSION
     Dosage: 50 MG, UNK
     Dates: start: 20090601
  4. GABAPENTIN [Concomitant]
     Dosage: 300 MG, UNK
     Dates: start: 20080809
  5. OXYCODONE HCL AND ACETAMINOPHEN [Concomitant]
  6. YAZ [Suspect]
     Indication: ORAL CONTRACEPTION
     Dosage: 1 UNK, UNK
  7. TYLENOL W/ CODEINE [Concomitant]
  8. IBUPROFEN [Concomitant]

REACTIONS (6)
  - CHOLELITHIASIS [None]
  - INJURY [None]
  - HYPOAESTHESIA [None]
  - BILIARY COLIC [None]
  - GALLBLADDER DISORDER [None]
  - PREGNANCY WITH CONTRACEPTIVE DEVICE [None]
